FAERS Safety Report 8358813-X (Version None)
Quarter: 2012Q2

REPORT INFORMATION
  Report Type: 
  Country: None (occurrence: None)
  Receive Date: 20120514
  Receipt Date: 20120501
  Transmission Date: 20120825
  Serious: Yes (Hospitalization, Other)
  Sender: FDA-Public Use
  Company Number: US-MYLANLABS-2009AL000986

PATIENT
  Age: 71 Year
  Sex: Male

DRUGS (20)
  1. KLOR-CON [Concomitant]
  2. POTASSIUM CHLORIDE [Concomitant]
  3. DOXYCYCLINE [Concomitant]
  4. AMOXICILLIN [Concomitant]
  5. DIGOXIN [Suspect]
     Indication: ARRHYTHMIA
     Route: 048
     Dates: start: 20030101, end: 20081128
  6. CEPHALEXIN [Concomitant]
  7. DIAZEPAM [Concomitant]
  8. PHENAZOPYRIDINE HCL TAB [Concomitant]
  9. PROMETHAZINE [Concomitant]
  10. SUCRALFATE [Concomitant]
  11. QUINIDINE HCL [Concomitant]
  12. ALLEGRA [Concomitant]
  13. METOPROLOL TARTRATE [Concomitant]
  14. SOTALOL HCL [Concomitant]
  15. ASPIRIN [Concomitant]
  16. LOVENOX [Concomitant]
     Dosage: Q1 2H X 5 DOSES
     Route: 058
  17. ATACAND [Concomitant]
  18. WARFARIN SODIUM [Concomitant]
     Dosage: ALTERNATING WITH 7.5MG QOD
  19. ANTACID TAB [Concomitant]
  20. VALIUM [Concomitant]

REACTIONS (36)
  - BRADYCARDIA [None]
  - CARDIAC DISORDER [None]
  - ANHEDONIA [None]
  - VERTIGO [None]
  - IMPLANTABLE DEFIBRILLATOR INSERTION [None]
  - HYPERTENSION [None]
  - CARDIAC PACEMAKER INSERTION [None]
  - CARDIOMYOPATHY [None]
  - TOXICITY TO VARIOUS AGENTS [None]
  - ECONOMIC PROBLEM [None]
  - LOSS OF EMPLOYMENT [None]
  - EXTRASYSTOLES [None]
  - CONDUCTION DISORDER [None]
  - ACTIVITIES OF DAILY LIVING IMPAIRED [None]
  - BLOOD PRESSURE ABNORMAL [None]
  - DIZZINESS [None]
  - HYPERLIPIDAEMIA [None]
  - ANXIETY [None]
  - DIASTOLIC DYSFUNCTION [None]
  - ATRIOVENTRICULAR BLOCK FIRST DEGREE [None]
  - INJURY [None]
  - MALAISE [None]
  - HEART RATE DECREASED [None]
  - EMOTIONAL DISTRESS [None]
  - PAIN [None]
  - ATRIAL FIBRILLATION [None]
  - VENTRICULAR TACHYCARDIA [None]
  - CONGESTIVE CARDIOMYOPATHY [None]
  - CARDIAC VALVE DISEASE [None]
  - EJECTION FRACTION DECREASED [None]
  - HEART RATE IRREGULAR [None]
  - VERTIGO POSITIONAL [None]
  - LEFT VENTRICULAR HYPERTROPHY [None]
  - CARDIAC MURMUR [None]
  - ILL-DEFINED DISORDER [None]
  - CARDIAC FAILURE CONGESTIVE [None]
